FAERS Safety Report 5458319-1 (Version None)
Quarter: 2007Q3

REPORT INFORMATION
  Report Type: 
  Country: None (occurrence: None)
  Receive Date: 20070919
  Receipt Date: 20070830
  Transmission Date: 20080115
  Serious: No
  Sender: FDA-Public Use
  Company Number: US-BAUSCH-2007BL003125

PATIENT
  Age: 49 Year
  Sex: Female

DRUGS (4)
  1. NEOMYCIN AND POLYMYXIN B SULFATES AND DEXAMETHASONE OPHTHALMIC SUSP [Suspect]
     Indication: POSTOPERATIVE CARE
     Route: 047
     Dates: start: 20070829
  2. SIMILASAN [Concomitant]
     Indication: KERATOCONJUNCTIVITIS SICCA
  3. TYLENOL /USA/ [Concomitant]
  4. CEPHALEXIN MONOHYDRATE [Concomitant]
     Indication: POSTOPERATIVE CARE
     Dates: start: 20070829

REACTIONS (6)
  - DRUG HYPERSENSITIVITY [None]
  - EYE IRRITATION [None]
  - EYELID DISORDER [None]
  - LACRIMATION INCREASED [None]
  - NASAL CONGESTION [None]
  - VISION BLURRED [None]
